FAERS Safety Report 4801992-9 (Version None)
Quarter: 2005Q4

REPORT INFORMATION
  Report Type: 
  Country: None (occurrence: None)
  Receive Date: 20051012
  Receipt Date: 20050929
  Transmission Date: 20060501
  Serious: Yes (Other)
  Sender: FDA-Public Use
  Company Number: 2005125397

PATIENT
  Age: 77 Year
  Sex: Male
  Weight: 78.0187 kg

DRUGS (4)
  1. LIPITOR [Suspect]
     Indication: BLOOD CHOLESTEROL
     Dosage: 10 MG (10 MG, 1 IN 1 D), ORAL
     Route: 048
     Dates: start: 20050610, end: 20050907
  2. ALL OTHER THERAPEUTIC PRODUCTS (ALL OTHER THERAPEUTIC PRODUCTS) [Concomitant]
  3. NORVASC [Concomitant]
  4. VIAGRA [Concomitant]

REACTIONS (2)
  - EYE HAEMORRHAGE [None]
  - MACULAR DEGENERATION [None]
